FAERS Safety Report 6843996-0 (Version None)
Quarter: 2010Q3

REPORT INFORMATION
  Report Type: 
  Country: None (occurrence: None)
  Receive Date: 20100714
  Receipt Date: 20100714
  Transmission Date: 20110219
  Serious: Yes (Hospitalization)
  Sender: FDA-Public Use
  Company Number: None

PATIENT
  Age: 72 Year
  Sex: Male
  Weight: 105 kg

DRUGS (11)
  1. VALSARTAN [Suspect]
     Indication: HYPERTENSION
     Dosage: 320 MG DAILY PO, PRIOR TO ADMIT
     Route: 048
  2. ASPIRIN [Concomitant]
  3. CLONIDINE [Concomitant]
  4. NOVOLOG [Concomitant]
  5. DETEMIR INSULIN [Concomitant]
  6. METFORMIN HCL [Concomitant]
  7. ALLOPURINOL [Concomitant]
  8. AMLODIPINE [Concomitant]
  9. DUTASTERIDE [Concomitant]
  10. FUROSEMIDE [Concomitant]
  11. ATORVASTATIN [Concomitant]

REACTIONS (2)
  - ANGIOEDEMA [None]
  - BLOOD GLUCOSE ABNORMAL [None]
